FAERS Safety Report 16191720 (Version 1)
Quarter: 2019Q2

REPORT INFORMATION
  Report Type: Spontaneous
  Country: BR (occurrence: BR)
  Receive Date: 20190412
  Receipt Date: 20190412
  Transmission Date: 20190711
  Serious: Yes (Other)
  Sender: FDA-Public Use
  Company Number: BR-009507513-1904BRA002782

PATIENT
  Age: 38 Year
  Sex: Male

DRUGS (3)
  1. TEMOZOLOMIDE. [Suspect]
     Active Substance: TEMOZOLOMIDE
     Indication: ASTROCYTOMA MALIGNANT
     Dosage: 2000 MILLIGRAM WITH CYCLES EVERY 28 DAYS
     Route: 048
     Dates: start: 2011, end: 2013
  2. TEMOZOLOMIDE. [Suspect]
     Active Substance: TEMOZOLOMIDE
     Dosage: 2000 MILLIGRAM WITH CYCLES EVERY 28 DAYS
     Route: 048
     Dates: start: 201506, end: 201601
  3. TEMOZOLOMIDE. [Suspect]
     Active Substance: TEMOZOLOMIDE
     Dosage: 100 MILLIGRAM, QD
     Route: 048
     Dates: start: 201503

REACTIONS (2)
  - Glioblastoma multiforme [Not Recovered/Not Resolved]
  - Treatment failure [Unknown]
